FAERS Safety Report 16647841 (Version 6)
Quarter: 2024Q3

REPORT INFORMATION
  Report Type: Spontaneous
  Country: US (occurrence: US)
  Receive Date: 20190730
  Receipt Date: 20240930
  Transmission Date: 20241016
  Serious: Yes (Other)
  Sender: GILEAD
  Company Number: US-GILEAD-2019-0420433

PATIENT
  Age: 37 Year
  Sex: Male
  Weight: 61.587 kg

DRUGS (56)
  1. ATRIPLA [Suspect]
     Active Substance: EFAVIRENZ\EMTRICITABINE\TENOFOVIR DISOPROXIL FUMARATE
     Indication: HIV infection
     Dosage: UNK
     Route: 048
     Dates: start: 20070424, end: 20081002
  2. ATRIPLA [Suspect]
     Active Substance: EFAVIRENZ\EMTRICITABINE\TENOFOVIR DISOPROXIL FUMARATE
     Dosage: UNK
     Route: 048
     Dates: start: 20070424, end: 20081006
  3. TRUVADA [Suspect]
     Active Substance: EMTRICITABINE\TENOFOVIR DISOPROXIL FUMARATE
     Indication: HIV infection
     Dosage: 200-300MG QD
     Route: 048
     Dates: start: 20081002, end: 20150215
  4. TRUVADA [Suspect]
     Active Substance: EMTRICITABINE\TENOFOVIR DISOPROXIL FUMARATE
     Dosage: 200-300MG QD
     Route: 048
     Dates: start: 20081006, end: 20140207
  5. TRUVADA [Suspect]
     Active Substance: EMTRICITABINE\TENOFOVIR DISOPROXIL FUMARATE
     Dosage: 200-300MG QD
     Route: 048
     Dates: start: 20140307, end: 20150215
  6. COMPLERA [Suspect]
     Active Substance: EMTRICITABINE\RILPIVIRINE HYDROCHLORIDE\TENOFOVIR DISOPROXIL FUMARATE
     Indication: HIV infection
     Dosage: UNK
     Route: 065
     Dates: start: 20140127, end: 20140206
  7. COMPLERA [Suspect]
     Active Substance: EMTRICITABINE\RILPIVIRINE HYDROCHLORIDE\TENOFOVIR DISOPROXIL FUMARATE
     Dosage: UNK
     Route: 048
     Dates: start: 20140207, end: 2014
  8. ALBUTEROL [Concomitant]
     Active Substance: ALBUTEROL
  9. BENTYL [Concomitant]
     Active Substance: DICYCLOMINE HYDROCHLORIDE
  10. BELADONA [Concomitant]
  11. ZANTAC [Concomitant]
     Active Substance: RANITIDINE HYDROCHLORIDE
  12. CELECOXIB [Concomitant]
     Active Substance: CELECOXIB
  13. PHENERGAN [Concomitant]
     Active Substance: PROMETHAZINE HYDROCHLORIDE
  14. PAXIL [Concomitant]
     Active Substance: PAROXETINE HYDROCHLORIDE
  15. HYDROCHLOROTHIAZIDE [Concomitant]
     Active Substance: HYDROCHLOROTHIAZIDE
  16. DONNATAL [Concomitant]
     Active Substance: ATROPINE SULFATE\HYOSCYAMINE SULFATE\PHENOBARBITAL\SCOPOLAMINE HYDROBROMIDE
  17. IBUPROFEN [Concomitant]
     Active Substance: IBUPROFEN
  18. ALLEGRA [Concomitant]
     Active Substance: FEXOFENADINE HYDROCHLORIDE
  19. NORVIR [Concomitant]
     Active Substance: RITONAVIR
  20. REYATAZ [Concomitant]
     Active Substance: ATAZANAVIR SULFATE
  21. PROZAC [Concomitant]
     Active Substance: FLUOXETINE HYDROCHLORIDE
  22. PROPRANOLOL [Concomitant]
     Active Substance: PROPRANOLOL HYDROCHLORIDE
  23. SYMBICORT [Concomitant]
     Active Substance: BUDESONIDE\FORMOTEROL FUMARATE DIHYDRATE
  24. LORATADINE [Concomitant]
     Active Substance: LORATADINE
  25. ALEVE [Concomitant]
     Active Substance: NAPROXEN SODIUM
  26. ANTIVERT [Concomitant]
     Active Substance: MECLIZINE HYDROCHLORIDE
  27. ZITHROMAX [Concomitant]
     Active Substance: AZITHROMYCIN DIHYDRATE
  28. ISENTRESS [Concomitant]
     Active Substance: RALTEGRAVIR POTASSIUM
  29. ZOLOFT [Concomitant]
     Active Substance: SERTRALINE HYDROCHLORIDE
  30. AMOXICILLIN [Concomitant]
     Active Substance: AMOXICILLIN
  31. BUSPIRONE [Concomitant]
     Active Substance: BUSPIRONE HYDROCHLORIDE
  32. TRIUMEQ [Concomitant]
     Active Substance: ABACAVIR SULFATE\DOLUTEGRAVIR SODIUM\LAMIVUDINE
  33. LOSARTAN [Concomitant]
     Active Substance: LOSARTAN\LOSARTAN POTASSIUM
  34. VENTOLIN HFA [Concomitant]
     Active Substance: ALBUTEROL SULFATE
  35. IMODIUM [Concomitant]
     Active Substance: LOPERAMIDE HYDROCHLORIDE
  36. MECLIZINE HYDROCHLORIDE [Concomitant]
     Active Substance: MECLIZINE HYDROCHLORIDE
  37. LIPITOR [Concomitant]
     Active Substance: ATORVASTATIN CALCIUM
  38. VISTARIL [Concomitant]
     Active Substance: HYDROXYZINE PAMOATE
  39. REMERON [Concomitant]
     Active Substance: MIRTAZAPINE
  40. SEROQUEL [Concomitant]
     Active Substance: QUETIAPINE FUMARATE
  41. GABAPENTIN [Concomitant]
     Active Substance: GABAPENTIN
  42. FISH OIL [Concomitant]
     Active Substance: FISH OIL
  43. INDOMETHACIN [Concomitant]
     Active Substance: INDOMETHACIN
  44. ZOFRAN [Concomitant]
     Active Substance: ONDANSETRON HYDROCHLORIDE
  45. DICYCLOMINE HYDROCHLORIDE [Concomitant]
     Active Substance: DICYCLOMINE HYDROCHLORIDE
  46. CARVEDILOL [Concomitant]
     Active Substance: CARVEDILOL
  47. SPIRONOLACTONE [Concomitant]
     Active Substance: SPIRONOLACTONE
  48. ISOSORBIDE [Concomitant]
     Active Substance: ISOSORBIDE
  49. METHYLPREDNISOLONE [Concomitant]
     Active Substance: METHYLPREDNISOLONE
  50. MIRTAZAPINE [Concomitant]
     Active Substance: MIRTAZAPINE
  51. QUETIAPINE [Concomitant]
     Active Substance: QUETIAPINE
  52. HYDROXYZINE PAMOATE [Concomitant]
     Active Substance: HYDROXYZINE PAMOATE
  53. PREDNISONE [Concomitant]
     Active Substance: PREDNISONE
  54. SULFACETAMIDE [Concomitant]
     Active Substance: SULFACETAMIDE
  55. BETAMETHASONE DIPROPIONATE\CLOTRIMAZOLE [Concomitant]
     Active Substance: BETAMETHASONE DIPROPIONATE\CLOTRIMAZOLE
  56. ONDANSETRON [Concomitant]
     Active Substance: ONDANSETRON

REACTIONS (9)
  - Foot fracture [Recovered/Resolved]
  - Fracture [Unknown]
  - Bone density decreased [Not Recovered/Not Resolved]
  - Bone loss [Unknown]
  - Pain [Unknown]
  - Emotional distress [Unknown]
  - Anxiety [Unknown]
  - Anhedonia [Unknown]
  - Economic problem [Unknown]

NARRATIVE: CASE EVENT DATE: 20190601
